FAERS Safety Report 23049736 (Version 1)
Quarter: 2023Q4

REPORT INFORMATION
  Report Type: Spontaneous
  Country: US (occurrence: None)
  Receive Date: 20231007
  Receipt Date: 20231007
  Transmission Date: 20240110
  Serious: Yes (Hospitalization)
  Sender: FDA-Public Use
  Company Number: None

PATIENT
  Age: 43 Year
  Sex: Male
  Weight: 120.15 kg

DRUGS (5)
  1. WEGOVY [Suspect]
     Active Substance: SEMAGLUTIDE
     Indication: Body mass index increased
     Dosage: OTHER FREQUENCY : ONCE PER WEEK;?
     Route: 058
     Dates: start: 20230701
  2. DEVICE [Concomitant]
     Active Substance: DEVICE
  3. METOPROLOL [Concomitant]
     Active Substance: METOPROLOL
  4. BENEFIBER [Concomitant]
     Active Substance: STARCH, WHEAT
  5. MIRALAX [Concomitant]
     Active Substance: POLYETHYLENE GLYCOL 3350

REACTIONS (1)
  - Small intestinal obstruction [None]

NARRATIVE: CASE EVENT DATE: 20230904
